FAERS Safety Report 19913846 (Version 1)
Quarter: 2021Q4

REPORT INFORMATION
  Report Type: Spontaneous
  Country: SE (occurrence: AU)
  Receive Date: 20211004
  Receipt Date: 20211004
  Transmission Date: 20220303
  Serious: Yes (Congenital Anomaly)
  Sender: FDA-Public Use
  Company Number: SE-SA-SAC20210527001126

PATIENT
  Age: 17 Year

DRUGS (2)
  1. LEVETIRACETAM [Suspect]
     Active Substance: LEVETIRACETAM
     Indication: Product used for unknown indication
     Dosage: UNK, DURING 1ST TRIMESTER
  2. VALPROIC ACID [Suspect]
     Active Substance: VALPROIC ACID
     Indication: Product used for unknown indication
     Dosage: 1200 MG, QD, DURING 1ST TRIMESTER

REACTIONS (2)
  - Renal fusion anomaly [Unknown]
  - Foetal exposure during pregnancy [Unknown]
